FAERS Safety Report 26069184 (Version 1)
Quarter: 2025Q4

REPORT INFORMATION
  Report Type: Spontaneous
  Country: KZ (occurrence: KZ)
  Receive Date: 20251120
  Receipt Date: 20251120
  Transmission Date: 20260117
  Serious: Yes (Other)
  Sender: GILEAD
  Company Number: KZ-GILEAD-2025-0736532

PATIENT
  Sex: Male

DRUGS (1)
  1. ODEFSEY [Suspect]
     Active Substance: EMTRICITABINE\RILPIVIRINE HYDROCHLORIDE\TENOFOVIR ALAFENAMIDE FUMARATE
     Indication: HIV infection
     Dosage: UNK
     Route: 065
     Dates: start: 2021

REACTIONS (12)
  - Paralysis [Unknown]
  - Anxiety [Unknown]
  - Fear [Unknown]
  - Panic disorder [Unknown]
  - Flat affect [Unknown]
  - Decreased interest [Unknown]
  - Social problem [Unknown]
  - Aphasia [Unknown]
  - Tension [Unknown]
  - Mental disorder [Unknown]
  - Therapeutic response unexpected [Unknown]
  - Increased appetite [Unknown]
